FAERS Safety Report 13085865 (Version 1)
Quarter: 2017Q1

REPORT INFORMATION
  Report Type: Spontaneous
  Country: DE (occurrence: DE)
  Receive Date: 20170104
  Receipt Date: 20170104
  Transmission Date: 20170428
  Serious: Yes (Other)
  Sender: FDA-Public Use
  Company Number: DE-TEVA-723712GER

PATIENT
  Sex: Female

DRUGS (6)
  1. LISINOPRIL ABZ 5 MG [Suspect]
     Active Substance: LISINOPRIL
     Dosage: INTAKE FOR SEVERAL YEARS
     Route: 048
  2. RANEXA [Interacting]
     Active Substance: RANOLAZINE
     Route: 048
     Dates: start: 20160403
  3. ASS 100 (MAH 1A-PHARMA) [Interacting]
     Active Substance: ASPIRIN
     Route: 048
  4. CRESTOR [Interacting]
     Active Substance: ROSUVASTATIN CALCIUM
     Dosage: INTAKE FOR SEVERAL YEARS
     Route: 048
  5. BISOPROLOL 1.25 MG [Interacting]
     Active Substance: BISOPROLOL
     Dosage: INTAKE FOR SEVERAL YEARS
     Route: 048
  6. RANEXA [Interacting]
     Active Substance: RANOLAZINE
     Route: 048
     Dates: start: 20160226

REACTIONS (5)
  - Loss of consciousness [Recovered/Resolved]
  - Accident [Recovered/Resolved]
  - Hypoglycaemia [Recovered/Resolved]
  - Loss of consciousness [None]
  - Drug interaction [Unknown]

NARRATIVE: CASE EVENT DATE: 20160406
